FAERS Safety Report 11232438 (Version 1)
Quarter: 2015Q3

REPORT INFORMATION
  Report Type: Spontaneous
  Country: RO (occurrence: RO)
  Receive Date: 20150701
  Receipt Date: 20150701
  Transmission Date: 20151125
  Serious: Yes (Hospitalization)
  Sender: FDA-Public Use
  Company Number: RO-ELI_LILLY_AND_COMPANY-RO201506010217

PATIENT
  Age: 31 Year
  Sex: Female

DRUGS (7)
  1. HUMULIN N [Suspect]
     Active Substance: INSULIN HUMAN
     Dosage: 28 IU, EACH MORNING
     Route: 065
     Dates: start: 201007
  2. INSULIN LISPRO [Suspect]
     Active Substance: INSULIN LISPRO
     Indication: TYPE 2 DIABETES MELLITUS
     Dosage: 10 IU, EACH MORNING
     Route: 065
     Dates: start: 201007
  3. HUMULIN N [Suspect]
     Active Substance: INSULIN HUMAN
     Indication: TYPE 2 DIABETES MELLITUS
     Dosage: 10 IU, BID
     Route: 065
     Dates: start: 201005
  4. HUMULIN N [Suspect]
     Active Substance: INSULIN HUMAN
     Dosage: 24 IU, EACH MORNING
     Route: 065
     Dates: start: 201007, end: 201203
  5. HUMULIN N [Suspect]
     Active Substance: INSULIN HUMAN
     Dosage: 16 IU, EACH EVENING
     Route: 065
     Dates: start: 201007, end: 201203
  6. INSULIN LISPRO [Suspect]
     Active Substance: INSULIN LISPRO
     Dosage: 8 IU, BID
     Route: 065
     Dates: start: 201007
  7. HUMULIN N [Suspect]
     Active Substance: INSULIN HUMAN
     Dosage: 18 IU, EACH EVENING
     Route: 065
     Dates: start: 201007

REACTIONS (4)
  - Blood glucose increased [Unknown]
  - Glycosylated haemoglobin increased [Unknown]
  - Maternal exposure during pregnancy [Recovered/Resolved]
  - Insulin C-peptide increased [Unknown]

NARRATIVE: CASE EVENT DATE: 201007
